FAERS Safety Report 13075479 (Version 1)
Quarter: 2016Q4

REPORT INFORMATION
  Report Type: Report from Study
  Country: US (occurrence: US)
  Receive Date: 20161230
  Receipt Date: 20161230
  Transmission Date: 20170207
  Serious: Yes (Hospitalization)
  Sender: FDA-Public Use
  Company Number: US-PFIZER INC-2016339315

PATIENT
  Age: 19 Year
  Sex: Female
  Weight: 63.6 kg

DRUGS (14)
  1. METHOTREXATE SODIUM. [Suspect]
     Active Substance: METHOTREXATE SODIUM
     Indication: ANAPLASTIC LARGE-CELL LYMPHOMA
     Dosage: 7.5-12MG IT ON DAY 1 OF PROPHASE, 3000MG/M2 IV OVER 3 HOURS ON DAY 1 O F COURSE A AND COURS
     Route: 042
     Dates: end: 20151020
  2. LUPRON [Suspect]
     Active Substance: LEUPROLIDE ACETATE
     Indication: ANAPLASTIC LARGE-CELL LYMPHOMA
     Dosage: UNK
  3. CYTARABINE. [Concomitant]
     Active Substance: CYTARABINE
     Indication: ANAPLASTIC LARGE-CELL LYMPHOMA
     Dosage: 15-24 MG IT ON DAY 1OF PROPHASE, 150MG/M2 IV OVER 1-30 MINUTES Q12 HOURS ON DAYS 4 AND 5 OF COURSE A
     Dates: end: 20151002
  4. CYCLOPHOSPHAMIDE. [Concomitant]
     Active Substance: CYCLOPHOSPHAMIDE
     Indication: ANAPLASTIC LARGE-CELL LYMPHOMA
     Dosage: 200 MG/M2, OVER 15-30 MINUTES ON DAYS 1 AND 2 OF PROPHASE AND ON DAYS 1-5 OF COURSE B
     Route: 042
     Dates: end: 20151024
  5. IFOSFAMIDE. [Concomitant]
     Active Substance: IFOSFAMIDE
     Indication: ANAPLASTIC LARGE-CELL LYMPHOMA
     Dosage: 800 MG/M2, OVER 60 MIN ON DAYS 1-5 OF COURSE A
     Route: 042
     Dates: end: 20161002
  6. VP-16 [Concomitant]
     Active Substance: ETOPOSIDE
     Indication: ANAPLASTIC LARGE-CELL LYMPHOMA
     Dosage: 100 MG/M2, OVER 2 HOURS ON DAYS 4 AND 5 OF COURSE A
     Route: 042
     Dates: end: 20161002
  7. LORAZEPAM. [Concomitant]
     Active Substance: LORAZEPAM
  8. CRIZOTINIB [Suspect]
     Active Substance: CRIZOTINIB
     Indication: ANAPLASTIC LARGE-CELL LYMPHOMA
     Dosage: 165 MG/M2, BID ON DAYS 1-21 OF COURSE A AND COURSE B.
     Route: 048
     Dates: end: 20151110
  9. FAMOTIDINE. [Concomitant]
     Active Substance: FAMOTIDINE
  10. DEXAMETHASONE. [Suspect]
     Active Substance: DEXAMETHASONE
     Indication: ANAPLASTIC LARGE-CELL LYMPHOMA
     Dosage: 5 MG/M2, QD ON DAYS 1-2 AND BID ON DAYS 3-5 OF PROPHASE, PO BID ON DAYS 1-5 OF COURSE A AND COURSE B
     Route: 048
     Dates: end: 20151025
  11. DOXORUBICIN HYDROCHLORIDE. [Concomitant]
     Active Substance: DOXORUBICIN HYDROCHLORIDE
     Indication: ANAPLASTIC LARGE-CELL LYMPHOMA
     Dosage: 25 MG/M2, OVER 1-15 MIN ON DAYS 4 AND 5 OF COURSE B
     Route: 042
     Dates: start: 20151023, end: 20151024
  12. ONDANSETRON [Concomitant]
     Active Substance: ONDANSETRON
  13. SULFAMETHOXAZOLE/TRIMETHOPRIM [Concomitant]
  14. LEUCOVORIN. [Suspect]
     Active Substance: LEUCOVORIN
     Indication: ANAPLASTIC LARGE-CELL LYMPHOMA

REACTIONS (1)
  - Embolism [Unknown]

NARRATIVE: CASE EVENT DATE: 20151110
